FAERS Safety Report 12468338 (Version 1)
Quarter: 2016Q2

REPORT INFORMATION
  Report Type: Spontaneous
  Country: FR (occurrence: FR)
  Receive Date: 20160615
  Receipt Date: 20160615
  Transmission Date: 20160815
  Serious: Yes (Hospitalization, Other)
  Sender: FDA-Public Use
  Company Number: FR-PFIZER INC-2016292591

PATIENT
  Age: 63 Year
  Sex: Male

DRUGS (14)
  1. KARDEGIC [Concomitant]
     Active Substance: ASPIRIN LYSINE
  2. TAHOR [Suspect]
     Active Substance: ATORVASTATIN CALCIUM
     Indication: DYSLIPIDAEMIA
     Dosage: 80 MG, 1X/DAY
     Route: 048
     Dates: start: 20150209, end: 20160517
  3. SPECIAFOLDINE [Concomitant]
     Active Substance: FOLIC ACID
     Dosage: UNK
     Dates: start: 201605
  4. INEXIUM [Concomitant]
     Active Substance: ESOMEPRAZOLE
  5. NEORAL [Interacting]
     Active Substance: CYCLOSPORINE
     Indication: RENAL TRANSPLANT
     Dosage: 100 MG, 2X/DAY
     Route: 048
     Dates: start: 20160323
  6. SODIUM BICARBONATE. [Concomitant]
     Active Substance: SODIUM BICARBONATE
     Dosage: UNK
     Dates: start: 201605
  7. CELLCEPT [Concomitant]
     Active Substance: MYCOPHENOLATE MOFETIL\MYCOPHENOLATE MOFETIL HYDROCHLORIDE
  8. BACTRIM [Concomitant]
     Active Substance: SULFAMETHOXAZOLE\TRIMETHOPRIM
  9. MECIR [Concomitant]
     Active Substance: TAMSULOSIN HYDROCHLORIDE
  10. SOLUPRED [Concomitant]
     Active Substance: PREDNISOLONE
  11. BISOCE [Concomitant]
     Active Substance: BISOPROLOL
  12. AMLOR [Concomitant]
     Active Substance: AMLODIPINE BESYLATE
  13. LASILIX [Concomitant]
     Active Substance: FUROSEMIDE
  14. UVEDOSE [Concomitant]
     Active Substance: CHOLECALCIFEROL
     Dosage: UNK
     Dates: start: 201605

REACTIONS (4)
  - Rhabdomyolysis [Recovering/Resolving]
  - Transaminases increased [Recovering/Resolving]
  - Drug interaction [Recovering/Resolving]
  - Acute kidney injury [Recovered/Resolved]

NARRATIVE: CASE EVENT DATE: 20160517
